FAERS Safety Report 5031662-6 (Version None)
Quarter: 2006Q2

REPORT INFORMATION
  Report Type: 
  Country: None (occurrence: None)
  Receive Date: 20060616
  Receipt Date: 20060530
  Transmission Date: 20061013
  Serious: Yes (Other)
  Sender: FDA-Public Use
  Company Number: US200605004952

PATIENT
  Age: 56 Year
  Sex: Female

DRUGS (12)
  1. HUMULIN R [Suspect]
     Indication: DIABETES MELLITUS
     Dates: start: 20050501
  2. PROZAC [Suspect]
  3. ANTI-DIABETICS [Concomitant]
  4. COUMADIN [Concomitant]
  5. LASIX (FUROSEMIDE, FUROSEMIDE SODIUM) [Concomitant]
  6. NITROGLYCERIN TRANSDERMAL SYSTEM (GLYCERYL TRINITRATE) [Concomitant]
  7. NEXIUM [Concomitant]
  8. ACCUPRIL [Concomitant]
  9. NEURONTIN [Concomitant]
  10. ADVAIR DISKUS 100/50 [Concomitant]
  11. KEFLEX [Concomitant]
  12. TRICOR [Concomitant]

REACTIONS (1)
  - CORONARY ARTERY OCCLUSION [None]
